FAERS Safety Report 16728505 (Version 2)
Quarter: 2019Q4

REPORT INFORMATION
  Report Type: Report from Study
  Country: JP (occurrence: JP)
  Receive Date: 20190822
  Receipt Date: 20191008
  Transmission Date: 20200122
  Serious: Yes (Hospitalization, Other)
  Sender: FDA-Public Use
  Company Number: JP-ACTELION-A-CH2019-194590

PATIENT
  Age: 1 Year
  Sex: Male
  Weight: 8.01 kg

DRUGS (21)
  1. OPSUMIT [Suspect]
     Active Substance: MACITENTAN
     Dosage: 0.8 MG, OD
     Route: 048
     Dates: start: 20180601, end: 20180602
  2. FUROSEMIDE. [Suspect]
     Active Substance: FUROSEMIDE
     Indication: LEFT VENTRICULAR FAILURE
     Dosage: 24 MG, QD
     Route: 048
     Dates: start: 20180525
  3. VANCOMYCIN [Suspect]
     Active Substance: VANCOMYCIN
     Indication: POSTOPERATIVE WOUND INFECTION
     Dosage: 150 MG, BID
     Route: 042
     Dates: start: 20180526
  4. NITRIC OXIDE. [Concomitant]
     Active Substance: NITRIC OXIDE
  5. OPSUMIT [Suspect]
     Active Substance: MACITENTAN
     Indication: PULMONARY ARTERIAL HYPERTENSION
     Dosage: 0.4 MG, OD
     Route: 048
     Dates: start: 20180529, end: 20180531
  6. EPOPROSTENOL. [Suspect]
     Active Substance: EPOPROSTENOL
     Dosage: 2 NG/KG, PER MIN
     Route: 042
     Dates: end: 20180528
  7. HANP [Suspect]
     Active Substance: CARPERITIDE
     Indication: RIGHT VENTRICULAR FAILURE
     Dosage: 0.15 ?G/KG, PER MIN
     Route: 042
     Dates: start: 20180510
  8. OXYGEN. [Concomitant]
     Active Substance: OXYGEN
  9. ALDACTONE A [Suspect]
     Active Substance: SPIRONOLACTONE
     Indication: LEFT VENTRICULAR FAILURE
     Dosage: 24 MG, QD
     Route: 048
     Dates: start: 20180525
  10. DOBUTAMINE [Suspect]
     Active Substance: DOBUTAMINE HYDROCHLORIDE
     Indication: RIGHT VENTRICULAR FAILURE
     Dosage: 3 ?G/KG, PER MIN
     Route: 042
     Dates: start: 20180510
  11. CORETEC [Suspect]
     Active Substance: OLPRINONE HYDROCHLORIDE
     Indication: LEFT VENTRICULAR FAILURE
     Dosage: 0.21 ?G/KG, PER MIN
     Route: 042
     Dates: start: 20180510
  12. DIPYRIDAMOLE. [Suspect]
     Active Substance: DIPYRIDAMOLE
     Indication: THROMBOSIS PROPHYLAXIS
     Dosage: 16 MG, BID
     Route: 048
     Dates: start: 20180525
  13. THYRADIN [Suspect]
     Active Substance: LEVOTHYROXINE
     Indication: HYPOTHYROIDISM
     Dosage: 70 MCG, QD
     Route: 048
     Dates: start: 20180525
  14. SULBACILLIN [Suspect]
     Active Substance: AMPICILLIN SODIUM\SULBACTAM SODIUM
     Indication: POSTOPERATIVE WOUND INFECTION
     Dosage: 400 MG, TID
     Route: 042
     Dates: start: 20180528
  15. EPOPROSTENOL. [Suspect]
     Active Substance: EPOPROSTENOL
     Indication: PULMONARY HYPERTENSION
     Dosage: UNK
     Route: 042
     Dates: start: 20180524, end: 20180528
  16. BIOFERMIN R [Suspect]
     Active Substance: DIETARY SUPPLEMENT\PROBIOTICS
     Indication: DIARRHOEA
     Dosage: 0.3 G, TID
     Route: 048
     Dates: start: 20180524
  17. NOBELBAR [Suspect]
     Active Substance: PHENOBARBITAL SODIUM
     Indication: SEDATIVE THERAPY
     Dosage: 15 MG, QD
     Route: 042
     Dates: start: 20180524
  18. TAKEPRON [Suspect]
     Active Substance: LANSOPRAZOLE
     Indication: PROPHYLAXIS AGAINST GASTROINTESTINAL ULCER
     Dosage: 4 MG, QD
     Route: 042
     Dates: start: 20180510
  19. REVATIO [Suspect]
     Active Substance: SILDENAFIL CITRATE
     Indication: PULMONARY ARTERIAL HYPERTENSION
     Dosage: 2 MG, QID
     Route: 048
     Dates: start: 20180525
  20. GLUCONSAN K [Suspect]
     Active Substance: POTASSIUM GLUCONATE
     Indication: HYPOKALAEMIA
     Dosage: 4 MEQ, TID
     Route: 048
     Dates: start: 20180525
  21. LASIX [Suspect]
     Active Substance: FUROSEMIDE
     Indication: RIGHT VENTRICULAR FAILURE
     Dosage: 0.31 MG/KG
     Route: 042
     Dates: start: 20180510

REACTIONS (6)
  - Blood pressure decreased [Recovering/Resolving]
  - Hepatic function abnormal [Recovered/Resolved]
  - Alanine aminotransferase increased [Recovered/Resolved]
  - Aspartate aminotransferase increased [Recovered/Resolved]
  - Pulmonary haemorrhage [Recovering/Resolving]
  - Transfusion [Unknown]

NARRATIVE: CASE EVENT DATE: 20180531
